FAERS Safety Report 7615755-2 (Version None)
Quarter: 2011Q3

REPORT INFORMATION
  Report Type: 
  Country: None (occurrence: None)
  Receive Date: 20110715
  Receipt Date: 20110715
  Transmission Date: 20111222
  Serious: Yes (Hospitalization)
  Sender: FDA-Public Use
  Company Number: None

PATIENT
  Age: 69 Year
  Sex: Male

DRUGS (4)
  1. PROCRIT [Concomitant]
  2. REVLIMID [Suspect]
     Indication: MYELOPROLIFERATIVE DISORDER
     Dosage: 10MG DAILY ORALLY
     Route: 048
     Dates: start: 20110405, end: 20110623
  3. LEVOTHROID [Concomitant]
  4. PREDNISONE [Concomitant]

REACTIONS (7)
  - ABDOMINAL PAIN UPPER [None]
  - HYDRONEPHROSIS [None]
  - FATIGUE [None]
  - CALCULUS URETERIC [None]
  - WEIGHT DECREASED [None]
  - PLATELET COUNT DECREASED [None]
  - ACUTE LEUKAEMIA [None]
